FAERS Safety Report 7842703-2 (Version None)
Quarter: 2011Q4

REPORT INFORMATION
  Report Type: 
  Country: None (occurrence: None)
  Receive Date: 20111025
  Receipt Date: 20111018
  Transmission Date: 20120403
  Serious: Yes (Life-Threatening, Hospitalization)
  Sender: FDA-Public Use
  Company Number: GB-PFIZER INC-2011251131

PATIENT
  Age: 90 Year
  Sex: Male

DRUGS (15)
  1. AMOXICILLIN AND CLAVULANATE POTASSIUM [Suspect]
     Indication: SKIN ULCER
     Dosage: 1 DF, 2X/DAY
     Route: 048
     Dates: start: 20110729, end: 20110805
  2. DOXYCYCLINE [Concomitant]
     Dosage: 100 MG, 1X/DAY
     Route: 048
  3. MUPIROCIN [Concomitant]
     Dosage: 1 DF, 3X/DAY 2% STRENGTH
     Route: 045
  4. DOCUSATE SODIUM [Concomitant]
     Dosage: 100 MG, UNK
     Route: 048
  5. MOVIPREP [Concomitant]
     Dosage: 27.6 G, 1X/DAY, 13.8 G STRENGTH
     Route: 048
  6. PARACETAMOL [Concomitant]
     Dosage: 1 G, 4X/DAY, 500 MG STRENGTH
  7. FLUTICASONE PROPIONATE/SALMETEROL [Concomitant]
     Dosage: 2 DF, 2X/DAY
     Route: 055
  8. GABAPENTIN [Suspect]
     Indication: CERVICAL MYELOPATHY
     Dosage: 300 MG, 4X/DAY
     Route: 048
     Dates: start: 20020101, end: 20110815
  9. BETAMETHASONE VALERATE [Concomitant]
     Dosage: 1 DF, 2X/DAY 0.1%
  10. GABAPENTIN [Concomitant]
     Dosage: 300 MG, 4X/DAY
     Route: 048
  11. SALBUTAMOL [Concomitant]
     Dosage: 100 UG, TWICE AS NECESSARY
     Route: 055
  12. VISCOTEARS [Concomitant]
     Dosage: 1 DF, 4 TIMES PER 1 (UNIT NOT SPECIFIED), 0.2%
  13. CONOTRANE [Concomitant]
  14. CLOBETASONE BUTYRATE [Concomitant]
     Dosage: 1 DF, 2X/DAY 0.05%
  15. VENTOLIN [Concomitant]
     Dosage: 100 UG, 4X/DAY
     Route: 055

REACTIONS (2)
  - WHITE BLOOD CELL COUNT DECREASED [None]
  - NEUTROPENIA [None]
